FAERS Safety Report 4336300-3 (Version None)
Quarter: 2004Q2

REPORT INFORMATION
  Report Type: 
  Country: None (occurrence: None)
  Receive Date: 20040409
  Receipt Date: 20040409
  Transmission Date: 20050107
  Serious: Yes (Life-Threatening, Disabling)
  Sender: FDA-Public Use
  Company Number: None

PATIENT
  Age: 47 Year
  Sex: Male
  Weight: 109.7705 kg

DRUGS (2)
  1. ZYPREXA [Suspect]
     Indication: PSYCHOTIC DISORDER
     Dosage: 5 MG (OLANZAPINE)
     Dates: start: 20010101, end: 20040101
  2. DEPAKOTE [Suspect]
     Indication: AFFECTIVE DISORDER
     Dosage: 1000 MG (DEPAKOTE)
     Dates: start: 20010101, end: 20040101

REACTIONS (11)
  - ABNORMAL BEHAVIOUR [None]
  - ALOPECIA [None]
  - DEPRESSION [None]
  - DYSPEPSIA [None]
  - FEELINGS OF WORTHLESSNESS [None]
  - INSOMNIA [None]
  - LEGAL PROBLEM [None]
  - NIGHTMARE [None]
  - PARANOIA [None]
  - SUICIDAL IDEATION [None]
  - WEIGHT INCREASED [None]
